FAERS Safety Report 24116297 (Version 1)
Quarter: 2024Q3

REPORT INFORMATION
  Report Type: Spontaneous
  Country: GB (occurrence: GB)
  Receive Date: 20240722
  Receipt Date: 20240722
  Transmission Date: 20241017
  Serious: Yes (Hospitalization)
  Sender: MSN LABORATORIES
  Company Number: None

PATIENT

DRUGS (2)
  1. PIRFENIDONE [Suspect]
     Active Substance: PIRFENIDONE
     Indication: Product used for unknown indication
     Route: 065
  2. PIRFENIDONE [Suspect]
     Active Substance: PIRFENIDONE
     Route: 065

REACTIONS (1)
  - Adverse event [Unknown]
